FAERS Safety Report 7494200-4 (Version None)
Quarter: 2011Q2

REPORT INFORMATION
  Report Type: 
  Country: None (occurrence: None)
  Receive Date: 20110520
  Receipt Date: 20110510
  Transmission Date: 20111010
  Serious: Yes (Other)
  Sender: FDA-Public Use
  Company Number: US-PFIZER INC-US-WYE-H16304910

PATIENT
  Sex: Female

DRUGS (6)
  1. PRISTIQ [Suspect]
     Indication: ANXIETY
     Dosage: 50 MG, 1X/DAY
     Route: 048
     Dates: start: 20110301
  2. PRISTIQ [Suspect]
     Indication: DEPRESSION
  3. EFFEXOR [Suspect]
     Dosage: UNK
     Route: 048
  4. AMOXICILLIN [Suspect]
     Indication: TOOTH ABSCESS
     Dosage: UNK
     Dates: start: 20100701
  5. PRISTIQ [Suspect]
     Indication: MALAISE
  6. PRISTIQ [Suspect]
     Indication: INSOMNIA
     Dosage: 50.0 MG, 1X/DAY
     Route: 048
     Dates: start: 20090901, end: 20110101

REACTIONS (2)
  - SJOGREN'S SYNDROME [None]
  - TOOTH ABSCESS [None]
